FAERS Safety Report 18452443 (Version 1)
Quarter: 2020Q4

REPORT INFORMATION
  Report Type: Other
  Country: ES (occurrence: ES)
  Receive Date: 20201102
  Receipt Date: 20201102
  Transmission Date: 20210114
  Serious: Yes (Other)
  Sender: FDA-Public Use
  Company Number: ES-ROCHE-2701724

PATIENT

DRUGS (2)
  1. TOCILIZUMAB. [Suspect]
     Active Substance: TOCILIZUMAB
     Indication: GIANT CELL ARTERITIS
     Route: 065
  2. PREDNISONE. [Suspect]
     Active Substance: PREDNISONE
     Indication: GIANT CELL ARTERITIS
     Route: 065

REACTIONS (13)
  - Pneumonia cytomegaloviral [Unknown]
  - Skin necrosis [Unknown]
  - Bursitis infective [Unknown]
  - Meningitis [Unknown]
  - Cellulitis [Unknown]
  - Pneumonia [Unknown]
  - Anal abscess [Unknown]
  - Urinary tract infection [Unknown]
  - Urosepsis [Unknown]
  - Endocarditis [Unknown]
  - Infected skin ulcer [Unknown]
  - Sepsis [Unknown]
  - Herpes zoster [Unknown]
